FAERS Safety Report 7964609-0 (Version None)
Quarter: 2011Q4

REPORT INFORMATION
  Report Type: 
  Country: None (occurrence: None)
  Receive Date: 20111208
  Receipt Date: 20111205
  Transmission Date: 20120403
  Serious: Yes (Death)
  Sender: FDA-Public Use
  Company Number: TN-SANOFI-AVENTIS-2011SA079850

PATIENT
  Age: 77 Year
  Sex: Male

DRUGS (5)
  1. PLAVIX [Suspect]
     Route: 048
     Dates: start: 20100211, end: 20111102
  2. PERINDOPRIL [Concomitant]
     Route: 048
     Dates: end: 20111102
  3. PLAVIX [Suspect]
     Route: 048
     Dates: start: 20100211, end: 20111102
  4. ASPEGIC 325 [Concomitant]
     Route: 048
     Dates: end: 20111102
  5. DILTIAZEM HCL [Concomitant]
     Route: 048
     Dates: end: 20111102

REACTIONS (1)
  - LUNG NEOPLASM MALIGNANT [None]
